FAERS Safety Report 22299572 (Version 1)
Quarter: 2023Q2

REPORT INFORMATION
  Report Type: Spontaneous
  Country: US (occurrence: None)
  Receive Date: 20230508
  Receipt Date: 20230508
  Transmission Date: 20230721
  Serious: Yes (Death)
  Sender: FDA-Public Use
  Company Number: None

PATIENT
  Sex: Male

DRUGS (11)
  1. LENALIDOMIDE [Suspect]
     Active Substance: LENALIDOMIDE
     Route: 048
  2. ACETAMINOPHE [Concomitant]
  3. ACYCLOVIR [Concomitant]
     Active Substance: ACYCLOVIR
  4. ALBUTEROL [Concomitant]
  5. ASPIRIN [Concomitant]
  6. CETIRIZINE [Concomitant]
     Active Substance: CETIRIZINE HYDROCHLORIDE
  7. DEXAMETHASONE [Concomitant]
     Active Substance: DEXAMETHASONE
  8. FAMOTIDINE [Concomitant]
     Active Substance: FAMOTIDINE
  9. OXYCODONE [Concomitant]
     Active Substance: OXYCODONE
  10. REVLIMID [Concomitant]
     Active Substance: LENALIDOMIDE
  11. TRAMADOL HCL [Concomitant]
     Active Substance: TRAMADOL HYDROCHLORIDE

REACTIONS (1)
  - Death [None]
